FAERS Safety Report 13876994 (Version 1)
Quarter: 2017Q3

REPORT INFORMATION
  Report Type: Spontaneous
  Country: CH (occurrence: CH)
  Receive Date: 20170817
  Receipt Date: 20170817
  Transmission Date: 20171127
  Serious: Yes (Other)
  Sender: FDA-Public Use
  Company Number: CH-HQ SPECIALTY-CH-2017INT000301

PATIENT
  Age: 66 Year
  Sex: Male

DRUGS (8)
  1. RIFAMPICIN [Concomitant]
     Active Substance: RIFAMPIN
     Indication: CORONARY ARTERY DISEASE
  2. VANCOMYCIN [Concomitant]
     Active Substance: VANCOMYCIN
     Indication: CORONARY ARTERY DISEASE
     Dosage: UNK
  3. VANCOMYCIN [Concomitant]
     Active Substance: VANCOMYCIN
     Indication: ENDOCARDITIS
  4. GENTAMYCIN                         /00047101/ [Concomitant]
     Active Substance: GENTAMICIN
     Indication: ENDOCARDITIS
  5. DEXMEDETOMIDINE HYDROCHLORIDE. [Suspect]
     Active Substance: DEXMEDETOMIDINE HYDROCHLORIDE
     Indication: DELIRIUM
  6. GENTAMYCIN                         /00047101/ [Concomitant]
     Active Substance: GENTAMICIN
     Indication: CORONARY ARTERY DISEASE
     Dosage: UNK
  7. DEXMEDETOMIDINE HYDROCHLORIDE. [Suspect]
     Active Substance: DEXMEDETOMIDINE HYDROCHLORIDE
     Indication: SEDATION
     Dosage: 1 UG/KG/H INITIAL DOSE AS WELL AS AT START OF HYPERTHERMIA AND AT MAXIMUM OF HYPERTHERMIA
     Route: 042
  8. RIFAMPICIN [Concomitant]
     Active Substance: RIFAMPIN
     Indication: ENDOCARDITIS
     Dosage: UNK

REACTIONS (2)
  - Status epilepticus [Recovered/Resolved]
  - Hyperthermia [Recovered/Resolved]
